FAERS Safety Report 7161429-4 (Version None)
Quarter: 2010Q4

REPORT INFORMATION
  Report Type: 
  Country: None (occurrence: None)
  Receive Date: 20101215
  Receipt Date: 20101130
  Transmission Date: 20110411
  Serious: Yes (Hospitalization)
  Sender: FDA-Public Use
  Company Number: PHHY2010JP78234

PATIENT
  Age: 75 Year
  Sex: Female
  Weight: 56 kg

DRUGS (12)
  1. VOLTAREN [Suspect]
     Dosage: 50 MG DAILY
     Route: 048
  2. MEPENZOLATE BROMIDE [Concomitant]
     Dosage: 22.5 MG
     Route: 048
  3. REBAMIPIDE [Concomitant]
     Dosage: 200 MG
     Route: 048
  4. LANSOPRAZOLE [Concomitant]
     Dosage: 30 MG
  5. MAGNESIUM OXIDE [Concomitant]
     Dosage: 0.67 G
     Route: 048
  6. MELOXICAM [Concomitant]
     Dosage: 10 MG
     Route: 048
  7. CANDESARTAN CILEXETIL [Concomitant]
     Dosage: 8 MG
     Route: 048
  8. GLIMEPIRIDE [Concomitant]
     Dosage: 1 MG
     Route: 048
  9. ZOLPIDEM TARTRATE [Concomitant]
     Dosage: 10 MG
     Route: 048
  10. BROTIZOLAM [Concomitant]
     Dosage: 0.25 MG
     Route: 048
  11. CARBAZOCHROME SODIUM SULFONATE [Concomitant]
     Dosage: 90 MG
  12. ISOSORBIDE DINITRATE [Concomitant]
     Dosage: 40 MG
     Route: 048

REACTIONS (22)
  - ABDOMINAL DISTENSION [None]
  - ABDOMINAL PAIN [None]
  - ABDOMINAL PAIN LOWER [None]
  - ABDOMINAL PAIN UPPER [None]
  - BACK PAIN [None]
  - CHEST DISCOMFORT [None]
  - CHEST PAIN [None]
  - DECREASED APPETITE [None]
  - FAECES HARD [None]
  - FATIGUE [None]
  - FEELING HOT [None]
  - HOT FLUSH [None]
  - HYPERHIDROSIS [None]
  - INSOMNIA [None]
  - MIDDLE INSOMNIA [None]
  - NAUSEA [None]
  - PAIN IN EXTREMITY [None]
  - PALPITATIONS [None]
  - PETECHIAE [None]
  - SENSATION OF HEAVINESS [None]
  - THIRST [None]
  - TONGUE COATED [None]
